FAERS Safety Report 25650847 (Version 2)
Quarter: 2025Q3

REPORT INFORMATION
  Report Type: Spontaneous
  Country: US (occurrence: US)
  Receive Date: 20250806
  Receipt Date: 20250812
  Transmission Date: 20251021
  Serious: No
  Sender: SANOFI AVENTIS
  Company Number: US-SA-2025SA229505

PATIENT
  Age: 78 Year
  Sex: Female

DRUGS (1)
  1. DUPIXENT [Suspect]
     Active Substance: DUPILUMAB
     Route: 058

REACTIONS (5)
  - Swelling face [Unknown]
  - Erythema [Unknown]
  - Injection site pain [Unknown]
  - Accidental exposure to product [Unknown]
  - Exposure via skin contact [Unknown]
